FAERS Safety Report 18904241 (Version 1)
Quarter: 2021Q1

REPORT INFORMATION
  Report Type: Spontaneous
  Country: US (occurrence: US)
  Receive Date: 20210217
  Receipt Date: 20210217
  Transmission Date: 20210420
  Serious: No
  Sender: FDA-Public Use
  Company Number: US-DRREDDYS-USA/USA/21/0131681

PATIENT
  Age: 22 Year
  Sex: Male
  Weight: 76.5 kg

DRUGS (1)
  1. OMEPRAZOLE MAGNESIUM DELAYED RELEASE OTC [Suspect]
     Active Substance: OMEPRAZOLE MAGNESIUM
     Indication: GASTRITIS
     Route: 048
     Dates: start: 20210201

REACTIONS (3)
  - Incorrect dose administered [Unknown]
  - Product administration error [Unknown]
  - Product use in unapproved indication [Unknown]
